FAERS Safety Report 23836060 (Version 1)
Quarter: 2024Q2

REPORT INFORMATION
  Report Type: Report from Study
  Country: CA (occurrence: CA)
  Receive Date: 20240509
  Receipt Date: 20240509
  Transmission Date: 20240716
  Serious: Yes (Death, Other)
  Sender: FDA-Public Use
  Company Number: CA-BEH-2024167816

PATIENT
  Age: 73 Year
  Sex: Female
  Weight: 102 kg

DRUGS (5)
  1. HIZENTRA [Suspect]
     Active Substance: HUMAN IMMUNOGLOBULIN G
     Indication: Secondary immunodeficiency
     Dosage: UNK, QW
     Route: 065
     Dates: start: 20240111, end: 20240222
  2. HIZENTRA [Suspect]
     Active Substance: HUMAN IMMUNOGLOBULIN G
     Dosage: UNK
     Route: 065
     Dates: start: 20240111
  3. HIZENTRA [Suspect]
     Active Substance: HUMAN IMMUNOGLOBULIN G
     Dosage: UNK
     Route: 065
     Dates: start: 20240111
  4. HIZENTRA [Suspect]
     Active Substance: HUMAN IMMUNOGLOBULIN G
     Dosage: UNK
     Route: 065
     Dates: start: 20240117
  5. HIZENTRA [Suspect]
     Active Substance: HUMAN IMMUNOGLOBULIN G
     Dosage: UNK
     Route: 065
     Dates: start: 20240111

REACTIONS (9)
  - Death [Fatal]
  - Lymphoma [Unknown]
  - Injection site rash [Recovering/Resolving]
  - Injection site discolouration [Unknown]
  - Infusion site pain [Recovering/Resolving]
  - Injection site erythema [Recovering/Resolving]
  - Pruritus [Recovering/Resolving]
  - Injection site pain [Unknown]
  - Injection site erythema [Recovering/Resolving]

NARRATIVE: CASE EVENT DATE: 20240101
